FAERS Safety Report 5673537-5 (Version None)
Quarter: 2008Q1

REPORT INFORMATION
  Report Type: 
  Country: None (occurrence: None)
  Receive Date: 20080319
  Receipt Date: 20080312
  Transmission Date: 20080703
  Serious: Yes (Hospitalization)
  Sender: FDA-Public Use
  Company Number: US-BOEHRINGER INGELHEIM GMBH, GERMANY-2008-BP-03849BP

PATIENT
  Age: 55 Year
  Sex: Male

DRUGS (4)
  1. FLOMAX [Suspect]
     Indication: BENIGN PROSTATIC HYPERPLASIA
     Route: 048
     Dates: start: 20070101, end: 20080101
  2. TOPROL-XL [Concomitant]
  3. DIPYRIDAMOLE [Concomitant]
  4. ULTRACET [Concomitant]
     Indication: NECK PAIN

REACTIONS (4)
  - ATRIAL FIBRILLATION [None]
  - ERECTILE DYSFUNCTION [None]
  - OEDEMA PERIPHERAL [None]
  - RETROGRADE EJACULATION [None]
